FAERS Safety Report 6317974-4 (Version None)
Quarter: 2009Q3

REPORT INFORMATION
  Report Type: 
  Country: None (occurrence: None)
  Receive Date: 20090821
  Receipt Date: 20090812
  Transmission Date: 20100115
  Serious: Yes (Other)
  Sender: FDA-Public Use
  Company Number: GR-PFIZER INC-2009168878

PATIENT
  Age: 14 Year

DRUGS (2)
  1. ZOLOFT [Suspect]
     Route: 048
  2. ZOLOFT [Suspect]
     Route: 048

REACTIONS (3)
  - AMENORRHOEA [None]
  - CHROMATURIA [None]
  - SWEAT DISCOLOURATION [None]
